FAERS Safety Report 23487096 (Version 1)
Quarter: 2024Q1

REPORT INFORMATION
  Report Type: Spontaneous
  Country: US (occurrence: None)
  Receive Date: 20240205
  Receipt Date: 20240205
  Transmission Date: 20240410
  Serious: Yes (Hospitalization)
  Sender: FDA-Public Use
  Company Number: None

PATIENT
  Sex: Female

DRUGS (4)
  1. TRACLEER [Suspect]
     Active Substance: BOSENTAN
     Indication: Pulmonary arterial hypertension
     Dosage: FREQUENCY : TWICE A DAY;?
     Route: 045
     Dates: start: 202306
  2. TOBRAMYCIN (56AMOS/28 DAY) [Concomitant]
  3. AMOXACILLIN [Concomitant]
  4. SILDENAFIL [Suspect]
     Active Substance: SILDENAFIL

REACTIONS (4)
  - Seizure [None]
  - Pyrexia [None]
  - Respiratory distress [None]
  - Pneumonia [None]
